FAERS Safety Report 17526919 (Version 1)
Quarter: 2020Q1

REPORT INFORMATION
  Report Type: Spontaneous
  Country: GB (occurrence: GB)
  Receive Date: 20200310
  Receipt Date: 20200310
  Transmission Date: 20200409
  Serious: Yes (Other)
  Sender: FDA-Public Use
  Company Number: GB-TEVA-2020-GB-1196174

PATIENT
  Age: 92 Year
  Sex: Female
  Weight: 44 kg

DRUGS (8)
  1. BRIMONIDINE TARTRATE. [Concomitant]
     Active Substance: BRIMONIDINE TARTRATE
     Dosage: ONE DROP BOTH EYES; 2GTT
     Dates: start: 20190610
  2. FUROSEMIDE. [Concomitant]
     Active Substance: FUROSEMIDE
     Dosage: EVERYDAY
     Dates: start: 20190227
  3. ACETYLSALICYLIC ACID [Concomitant]
     Active Substance: ASPIRIN
     Dosage: 1 DOSAGE FORM
     Dates: start: 20190227
  4. LANSOPRAZOLE. [Concomitant]
     Active Substance: LANSOPRAZOLE
     Dosage: 1 DOSAGE FORM
     Dates: start: 20190227
  5. PARACETAMOL [Concomitant]
     Active Substance: ACETAMINOPHEN
     Dosage: 4 DOSAGE FORMS
     Dates: start: 20190227
  6. BISOPROLOL [Concomitant]
     Active Substance: BISOPROLOL
     Dosage: 1 DOSAGE FORM
     Dates: start: 20190227
  7. LATANOPROST. [Concomitant]
     Active Substance: LATANOPROST
     Dosage: 1 GTT DAILY; AT NIGHT
     Dates: start: 20190227
  8. RAMIPRIL. [Suspect]
     Active Substance: RAMIPRIL
     Dosage: 5MG
     Dates: start: 20190227

REACTIONS (1)
  - Lip swelling [Recovered/Resolved]
